FAERS Safety Report 5518088-3 (Version None)
Quarter: 2007Q4

REPORT INFORMATION
  Report Type: 
  Country: None (occurrence: None)
  Receive Date: 20071115
  Receipt Date: 20071107
  Transmission Date: 20080405
  Serious: Yes (Hospitalization)
  Sender: FDA-Public Use
  Company Number: PHBS2007JP18622

PATIENT
  Age: 66 Year
  Sex: Female

DRUGS (2)
  1. CYCLOSPORINE [Suspect]
     Indication: PYODERMA GANGRENOSUM
     Route: 065
  2. ADRENAL HORMONE PREPARATION [Concomitant]
     Indication: PYODERMA GANGRENOSUM
     Route: 065

REACTIONS (4)
  - CONDITION AGGRAVATED [None]
  - CYTOMEGALOVIRUS ANTIGEN POSITIVE [None]
  - SKIN ULCER [None]
  - THROMBOCYTOPENIA [None]
